FAERS Safety Report 9271446 (Version 3)
Quarter: 2013Q2

REPORT INFORMATION
  Report Type: Spontaneous
  Country: US (occurrence: US)
  Receive Date: 20130506
  Receipt Date: 20130619
  Transmission Date: 20140414
  Serious: No
  Sender: FDA-Public Use
  Company Number: US-PFIZER INC-2013137997

PATIENT
  Age: 35 Year
  Sex: Female

DRUGS (8)
  1. LYRICA [Suspect]
     Indication: FIBROMYALGIA
     Dosage: 225 MG, 2X/DAY
  2. TRAMADOL HCL [Suspect]
     Indication: PAIN
     Dosage: 50 MG, 2X/DAY
  3. VICODIN [Suspect]
     Indication: PAIN
     Dosage: 1000 MG, 2X/DAY
  4. PROMETHAZINE [Concomitant]
     Indication: FIBROMYALGIA
     Dosage: 25 MG, AS NEEDED
  5. ZOLOFT [Concomitant]
     Indication: ANXIETY
     Dosage: 50 MG, 2X/DAY
  6. ZOLOFT [Concomitant]
     Indication: DEPRESSION
  7. ATIVAN [Concomitant]
     Indication: ANXIETY
     Dosage: 2 MG, 2X/DAY
  8. ATIVAN [Concomitant]
     Indication: DEPRESSION

REACTIONS (2)
  - Pain [Not Recovered/Not Resolved]
  - Drug ineffective [Unknown]
